FAERS Safety Report 19573322 (Version 4)
Quarter: 2025Q1

REPORT INFORMATION
  Report Type: Spontaneous
  Country: US (occurrence: US)
  Receive Date: 20210717
  Receipt Date: 20250208
  Transmission Date: 20250408
  Serious: Yes (Hospitalization)
  Sender: AVEO PHARMACEUTICALS
  Company Number: US-AVEO ONCOLOGY-2021-AVEO-US003437

PATIENT

DRUGS (6)
  1. FOTIVDA [Suspect]
     Active Substance: TIVOZANIB HYDROCHLORIDE
     Indication: Renal cell carcinoma
     Route: 048
     Dates: start: 20210513, end: 20210628
  2. OLANZAPINE [Concomitant]
     Active Substance: OLANZAPINE
  3. LOMOTIL [Concomitant]
     Active Substance: ATROPINE SULFATE\DIPHENOXYLATE HYDROCHLORIDE
  4. ZESTRIL [Concomitant]
     Active Substance: LISINOPRIL
  5. WARFARIN [Concomitant]
     Active Substance: WARFARIN
  6. LIPITOR [Concomitant]
     Active Substance: ATORVASTATIN CALCIUM

REACTIONS (7)
  - Dehydration [Recovered/Resolved]
  - Blood pressure decreased [Recovered/Resolved]
  - Vomiting [Recovered/Resolved]
  - Nausea [Recovered/Resolved]
  - Diarrhoea [Recovered/Resolved]
  - Decreased appetite [Recovered/Resolved]
  - Feeling abnormal [Unknown]
